FAERS Safety Report 7155702-3 (Version None)
Quarter: 2010Q4

REPORT INFORMATION
  Report Type: 
  Country: None (occurrence: None)
  Receive Date: 20101214
  Receipt Date: 20101207
  Transmission Date: 20110411
  Serious: Yes (Death)
  Sender: FDA-Public Use
  Company Number: ES-CELGENEUS-144-50794-10120659

PATIENT

DRUGS (2)
  1. VIDAZA [Suspect]
     Route: 058
  2. VIDAZA [Suspect]
     Route: 051

REACTIONS (5)
  - DEATH [None]
  - GASTROINTESTINAL DISORDER [None]
  - INFECTION [None]
  - SKIN DISORDER [None]
  - TREATMENT FAILURE [None]
